FAERS Safety Report 5406250-X (Version None)
Quarter: 2007Q3

REPORT INFORMATION
  Report Type: 
  Country: None (occurrence: None)
  Receive Date: 20070806
  Receipt Date: 20070730
  Transmission Date: 20080115
  Serious: Yes (Other)
  Sender: FDA-Public Use
  Company Number: US-BRISTOL-MYERS SQUIBB COMPANY-13863808

PATIENT
  Sex: Female

DRUGS (2)
  1. STADOL [Suspect]
     Indication: MIGRAINE
     Dosage: 1 PUFF IN EACH NOSTRIL (FREQUENCY UNKNOWN)
     Route: 045
     Dates: start: 19960101
  2. MULTIVITAMIN [Concomitant]

REACTIONS (4)
  - BACTERIAL TOXAEMIA [None]
  - BLOOD THYROID STIMULATING HORMONE DECREASED [None]
  - PRE-ECLAMPSIA [None]
  - TYPE 1 DIABETES MELLITUS [None]
